FAERS Safety Report 9454931 (Version 1)
Quarter: 2013Q3

REPORT INFORMATION
  Report Type: Report from Study
  Country: US (occurrence: US)
  Receive Date: 20130813
  Receipt Date: 20130813
  Transmission Date: 20140515
  Serious: Yes (Hospitalization)
  Sender: FDA-Public Use
  Company Number: US-ROCHE-1259017

PATIENT
  Age: 57 Year
  Sex: Female

DRUGS (8)
  1. AVASTIN [Suspect]
     Indication: OVARIAN CANCER STAGE III
     Route: 042
     Dates: start: 20120428, end: 20130515
  2. XELODA [Suspect]
     Indication: OVARIAN CANCER
     Route: 065
     Dates: start: 20130428, end: 20130515
  3. OXALIPLATIN [Concomitant]
     Indication: OVARIAN CANCER STAGE III
     Route: 042
     Dates: start: 20120428, end: 20130515
  4. FAMOTIDINE [Concomitant]
     Route: 042
  5. PALONOSETRON [Concomitant]
     Route: 042
  6. DEXAMETHASONE [Concomitant]
     Route: 042
  7. ALLEGRA [Concomitant]
     Route: 048
  8. ACETAMINOPHEN [Concomitant]
     Route: 048

REACTIONS (3)
  - Thrombosis in device [Recovered/Resolved]
  - Neutropenia [Unknown]
  - Deep vein thrombosis [Recovered/Resolved]
